FAERS Safety Report 13916278 (Version 1)
Quarter: 2017Q3

REPORT INFORMATION
  Report Type: Spontaneous
  Country: IL (occurrence: IL)
  Receive Date: 20170829
  Receipt Date: 20170829
  Transmission Date: 20171127
  Serious: Yes (Other)
  Sender: FDA-Public Use
  Company Number: IL-SA-2017SA155709

PATIENT
  Sex: Male
  Weight: 3.3 kg

DRUGS (1)
  1. CEREZYME [Suspect]
     Active Substance: IMIGLUCERASE
     Route: 063
     Dates: start: 2000

REACTIONS (3)
  - Foetal heart rate decreased [Recovered/Resolved]
  - Exposure during pregnancy [Unknown]
  - Exposure during breast feeding [Unknown]
